FAERS Safety Report 5128745-9 (Version None)
Quarter: 2006Q4

REPORT INFORMATION
  Report Type: 
  Country: None (occurrence: None)
  Receive Date: 20061017
  Receipt Date: 20061010
  Transmission Date: 20070319
  Serious: Yes (Other)
  Sender: FDA-Public Use
  Company Number: 2006AP04680

PATIENT
  Age: 82 Year
  Sex: Male

DRUGS (11)
  1. SEROQUEL [Suspect]
     Indication: DEMENTIA
     Route: 048
     Dates: end: 20060816
  2. SEROQUEL [Suspect]
     Route: 048
     Dates: start: 20060817, end: 20060830
  3. SEROQUEL [Suspect]
     Route: 048
     Dates: start: 20060831
  4. MEVALOTIN [Concomitant]
     Route: 048
  5. OLMESARTAN MEDOXOMIL [Concomitant]
     Route: 048
  6. ASPIRIN [Concomitant]
     Route: 048
  7. LASIX [Concomitant]
     Route: 048
  8. NORVASC [Concomitant]
     Route: 048
  9. DIGITALIS TAB [Concomitant]
     Route: 048
     Dates: end: 20060627
  10. YOKUKAN-SAN [Concomitant]
     Route: 048
  11. AMOBAN [Concomitant]
     Route: 048

REACTIONS (1)
  - ELEVATED PACING THRESHOLD [None]
